FAERS Safety Report 5886877-1 (Version None)
Quarter: 2008Q3

REPORT INFORMATION
  Report Type: 
  Country: None (occurrence: None)
  Receive Date: 20080917
  Receipt Date: 20080909
  Transmission Date: 20090109
  Serious: Yes (Hospitalization, Other)
  Sender: FDA-Public Use
  Company Number: US-AMGEN-QUU306799

PATIENT
  Sex: Female

DRUGS (2)
  1. ENBREL [Suspect]
     Indication: RHEUMATOID ARTHRITIS
     Route: 058
     Dates: start: 20070401
  2. METHOTREXATE [Concomitant]
     Route: 048

REACTIONS (14)
  - ABDOMINAL PAIN [None]
  - ARTHRALGIA [None]
  - DEHYDRATION [None]
  - DRUG INEFFECTIVE [None]
  - EMPHYSEMA [None]
  - HEADACHE [None]
  - INGROWING NAIL [None]
  - KIDNEY INFECTION [None]
  - POST PROCEDURAL INFECTION [None]
  - PULMONARY MASS [None]
  - PYREXIA [None]
  - STAPHYLOCOCCAL INFECTION [None]
  - URINARY TRACT INFECTION [None]
  - VOMITING [None]
